FAERS Safety Report 23513495 (Version 2)
Quarter: 2024Q1

REPORT INFORMATION
  Report Type: Report from Study
  Country: AR (occurrence: AR)
  Receive Date: 20240212
  Receipt Date: 20240328
  Transmission Date: 20240409
  Serious: Yes (Death, Other)
  Sender: FDA-Public Use
  Company Number: AR-TAKEDA-2024TUS011026

PATIENT
  Sex: Female
  Weight: 4.1 kg

DRUGS (1)
  1. PROTEIN C [Suspect]
     Active Substance: PROTEIN C
     Indication: Purpura fulminans
     Dosage: UNK
     Route: 065

REACTIONS (2)
  - Pulmonary hypertension [Fatal]
  - Sepsis [Fatal]
